FAERS Safety Report 9504494 (Version 1)
Quarter: 2013Q3

REPORT INFORMATION
  Report Type: Spontaneous
  Country: US (occurrence: US)
  Receive Date: 20130906
  Receipt Date: 20130906
  Transmission Date: 20140515
  Serious: Yes (Hospitalization, Other)
  Sender: FDA-Public Use
  Company Number: US-ABBOTT-13P-163-1140031-00

PATIENT
  Sex: Female

DRUGS (6)
  1. HUMIRA [Suspect]
     Indication: CROHN^S DISEASE
  2. REMICADE [Concomitant]
     Indication: CROHN^S DISEASE
     Dates: start: 2005, end: 2006
  3. REMICADE [Concomitant]
  4. CIMZIA [Concomitant]
     Indication: CROHN^S DISEASE
  5. PREDNISONE [Concomitant]
     Indication: CROHN^S DISEASE
  6. ANTIBIOTICS [Concomitant]
     Indication: CROHN^S DISEASE

REACTIONS (2)
  - Intestinal obstruction [Unknown]
  - Crohn^s disease [Unknown]
